FAERS Safety Report 7677913-0 (Version None)
Quarter: 2011Q3

REPORT INFORMATION
  Report Type: 
  Country: None (occurrence: None)
  Receive Date: 20110811
  Receipt Date: 20110803
  Transmission Date: 20111222
  Serious: Yes (Hospitalization)
  Sender: FDA-Public Use
  Company Number: US-JNJFOC-2006017953

PATIENT
  Age: 22 Year
  Sex: Male

DRUGS (4)
  1. DEXTROMETHORPHAN HYDROBROMIDE [Suspect]
     Indication: PRODUCT USED FOR UNKNOWN INDICATION
     Dosage: DAILY DOSE TEXT: OVER 900 MG SPORADICALLY
     Route: 048
  2. CLONAZEPAM [Concomitant]
     Dosage: DAILY DOSE TEXT: 0.5 MG TWICE DAILY
     Route: 065
  3. FLUOXETINE [Interacting]
     Indication: PRODUCT USED FOR UNKNOWN INDICATION
     Dosage: DAILY DOSE TEXT: 20 MG DAILY
     Route: 065
  4. LITHIUM [Interacting]
     Indication: PRODUCT USED FOR UNKNOWN INDICATION
     Dosage: DAILY DOSE TEXT: 600 MG TWICE DAILY
     Route: 065

REACTIONS (9)
  - SEROTONIN SYNDROME [None]
  - PALPITATIONS [None]
  - INTENTIONAL OVERDOSE [None]
  - DISSOCIATIVE DISORDER [None]
  - HALLUCINATION [None]
  - DRUG ABUSE [None]
  - MEDICATION ERROR [None]
  - MENTAL DISORDER [None]
  - DRUG INTERACTION [None]
